FAERS Safety Report 8832493 (Version 1)
Quarter: 2012Q4

REPORT INFORMATION
  Report Type: 
  Country: US (occurrence: US)
  Receive Date: 20121010
  Receipt Date: 20121010
  Transmission Date: 20130627
  Serious: Yes (Hospitalization)
  Sender: FDA-Public Use
  Company Number: US-BAYER-2012-105657

PATIENT
  Age: 53 Year
  Sex: Female

DRUGS (2)
  1. AVELOX [Suspect]
  2. AMBRISENTAN [Suspect]
     Dosage: 5 mg, QD
     Dates: start: 20100709

REACTIONS (8)
  - Headache [None]
  - Swelling [None]
  - Sleep disorder [None]
  - Abdominal pain upper [None]
  - Anaphylactic reaction [None]
  - Gastrointestinal disorder [None]
  - Malaise [None]
  - Hypersensitivity [None]
